FAERS Safety Report 25935989 (Version 1)
Quarter: 2025Q4

REPORT INFORMATION
  Report Type: Spontaneous
  Country: US (occurrence: US)
  Receive Date: 20251017
  Receipt Date: 20251017
  Transmission Date: 20260117
  Serious: Yes (Other)
  Sender: BAYER HEALTHCARE LLC
  Company Number: US-BAYER-2025A135701

PATIENT
  Age: 52 Year
  Sex: Female

DRUGS (2)
  1. LOTRIMIN ANTIFUNGAL (MICONAZOLE NITRATE) [Suspect]
     Active Substance: MICONAZOLE NITRATE
     Dosage: UNK
  2. TINACTIN [Suspect]
     Active Substance: TOLNAFTATE

REACTIONS (5)
  - Mesothelioma [None]
  - Neoplasm malignant [None]
  - Exposure to chemical pollution [None]
  - Asbestosis [None]
  - Traumatic lung injury [None]

NARRATIVE: CASE EVENT DATE: 20240112
